FAERS Safety Report 8815401 (Version 2)
Quarter: 2012Q4

REPORT INFORMATION
  Report Type: Report from Study
  Country: KR (occurrence: KR)
  Receive Date: 20120928
  Receipt Date: 20121011
  Transmission Date: 20130627
  Serious: Yes (Other)
  Sender: FDA-Public Use
  Company Number: KR-ABBOTT-12P-090-0986929-00

PATIENT
  Age: 41 Year
  Sex: Male
  Weight: 84 kg

DRUGS (2)
  1. TEVETEN PLUS [Suspect]
     Indication: HYPERTENSION
     Dosage: 600/12.5 mg
     Route: 048
     Dates: start: 20120523
  2. ASPIRIN [Concomitant]
     Indication: CEREBROVASCULAR ACCIDENT PROPHYLAXIS
     Route: 048
     Dates: start: 20120523

REACTIONS (3)
  - Syncope [Recovered/Resolved]
  - Alcohol use [Recovered/Resolved]
  - Dizziness [Unknown]
